FAERS Safety Report 4452375-5 (Version None)
Quarter: 2004Q3

REPORT INFORMATION
  Report Type: 
  Country: None (occurrence: None)
  Receive Date: 20040917
  Receipt Date: 20040907
  Transmission Date: 20050211
  Serious: Yes (Hospitalization)
  Sender: FDA-Public Use
  Company Number: PHBS2004FR11817

PATIENT
  Age: 45 Year
  Sex: Male
  Weight: 62 kg

DRUGS (4)
  1. SANDIMMUNE [Suspect]
     Indication: PSORIASIS
     Dosage: 3 MG/KG/DAY
     Route: 048
     Dates: start: 19940701, end: 19971001
  2. SANDIMMUNE [Suspect]
     Dosage: UNK, UNK
     Route: 048
     Dates: start: 19980501
  3. DIPROSONE [Suspect]
     Indication: PSORIASIS
     Dosage: 30 MG/DAY
     Route: 061
     Dates: start: 19940101
  4. SALICYLIC ACID [Concomitant]
     Route: 061

REACTIONS (6)
  - ASEPTIC NECROSIS BONE [None]
  - DISEASE RECURRENCE [None]
  - OSTEONECROSIS [None]
  - PAIN IN EXTREMITY [None]
  - PSORIASIS [None]
  - SKIN ATROPHY [None]
